FAERS Safety Report 12793827 (Version 2)
Quarter: 2020Q2

REPORT INFORMATION
  Report Type: Spontaneous
  Country: US (occurrence: US)
  Receive Date: 20160929
  Receipt Date: 20200630
  Transmission Date: 20200713
  Serious: No
  Sender: FDA-Public Use
  Company Number: US-JAZZ-2016-US-011955

PATIENT
  Sex: Female
  Weight: 102.49 kg

DRUGS (33)
  1. MAXALT [Concomitant]
     Active Substance: RIZATRIPTAN BENZOATE
  2. IBUPROFEN. [Concomitant]
     Active Substance: IBUPROFEN
  3. CODEINE SULFATE. [Concomitant]
     Active Substance: CODEINE SULFATE
  4. PROVIGIL [Concomitant]
     Active Substance: MODAFINIL
  5. RITALIN [Concomitant]
     Active Substance: METHYLPHENIDATE HYDROCHLORIDE
  6. ZOFRAN [Concomitant]
     Active Substance: ONDANSETRON HYDROCHLORIDE
  7. CHERATUSSIN AC [Concomitant]
     Active Substance: CODEINE PHOSPHATE\GUAIFENESIN
  8. IPRATROPIUM [Concomitant]
     Active Substance: IPRATROPIUM
  9. BUTALB/ACET/CAFFEINE [Concomitant]
  10. MELOXICAM. [Concomitant]
     Active Substance: MELOXICAM
  11. PROMETHAZINE [PROMETHAZINE HYDROCHLORIDE] [Concomitant]
     Active Substance: PROMETHAZINE HYDROCHLORIDE
  12. TYLENOL WITH CODEINE [Concomitant]
     Active Substance: ACETAMINOPHEN\CODEINE PHOSPHATE
  13. MAXALT-MLT [Concomitant]
     Active Substance: RIZATRIPTAN BENZOATE
  14. PREDNISONE. [Concomitant]
     Active Substance: PREDNISONE
  15. TAMIFLU [Concomitant]
     Active Substance: OSELTAMIVIR PHOSPHATE
  16. DOXYCYCLINE HYCLATE. [Concomitant]
     Active Substance: DOXYCYCLINE HYCLATE
  17. ALBUTEROL SULFATE. [Concomitant]
     Active Substance: ALBUTEROL SULFATE
  18. LORTAB [LORATADINE] [Concomitant]
     Active Substance: LORATADINE
  19. CLEOCIN [CLINDAMYCIN HYDROCHLORIDE] [Concomitant]
  20. PROAIR HFA [Concomitant]
     Active Substance: ALBUTEROL SULFATE
  21. ADVAIR HFA [Concomitant]
     Active Substance: FLUTICASONE PROPIONATE\SALMETEROL XINAFOATE
  22. CLEOCIN [CLINDAMYCIN HYDROCHLORIDE] [Concomitant]
  23. NORCO [Concomitant]
     Active Substance: ACETAMINOPHEN\HYDROCODONE BITARTRATE
  24. IPRATROPIUM BROMIDE. [Concomitant]
     Active Substance: IPRATROPIUM BROMIDE
  25. SINGULAIR [Concomitant]
     Active Substance: MONTELUKAST SODIUM
  26. TYLENOL WITH CODEINE [Concomitant]
     Active Substance: ACETAMINOPHEN\CODEINE PHOSPHATE
  27. ONDANSETRON HCL [Concomitant]
     Active Substance: ONDANSETRON HYDROCHLORIDE
  28. NUVARING [Concomitant]
     Active Substance: ETHINYL ESTRADIOL\ETONOGESTREL
  29. COUMADIN [Concomitant]
     Active Substance: WARFARIN SODIUM
  30. XYREM [Suspect]
     Active Substance: SODIUM OXYBATE
     Indication: NARCOLEPSY
     Dosage: 2.25 G, BID
     Route: 048
     Dates: start: 201503, end: 201503
  31. XYREM [Suspect]
     Active Substance: SODIUM OXYBATE
     Indication: CATAPLEXY
     Dosage: 3 G, BID
     Route: 048
     Dates: start: 201503
  32. BUTALBITAL, ACETAMINOPHEN, AND CAFFEINE [Concomitant]
     Active Substance: ACETAMINOPHEN\BUTALBITAL\CAFFEINE
  33. METHYLPHENIDATE. [Concomitant]
     Active Substance: METHYLPHENIDATE

REACTIONS (1)
  - Migraine [Recovering/Resolving]
